FAERS Safety Report 5215499-0 (Version None)
Quarter: 2007Q1

REPORT INFORMATION
  Report Type: 
  Country: None (occurrence: None)
  Receive Date: 20070123
  Receipt Date: 20070112
  Transmission Date: 20070707
  Serious: Yes (Hospitalization)
  Sender: FDA-Public Use
  Company Number: GB-JNJFOC-20070102947

PATIENT
  Age: 49 Year
  Sex: Female

DRUGS (6)
  1. REMICADE [Suspect]
     Route: 042
  2. REMICADE [Suspect]
     Route: 042
  3. REMICADE [Suspect]
     Route: 042
  4. REMICADE [Suspect]
     Indication: CROHN'S DISEASE
     Route: 042
  5. METHOTREXATE [Concomitant]
  6. METHOTREXATE [Concomitant]

REACTIONS (7)
  - BLOOD PRESSURE DECREASED [None]
  - DIARRHOEA [None]
  - DIZZINESS [None]
  - FLUSHING [None]
  - INFUSION RELATED REACTION [None]
  - NAUSEA [None]
  - PALPITATIONS [None]
